FAERS Safety Report 9305876 (Version 1)
Quarter: 2013Q2

REPORT INFORMATION
  Report Type: Spontaneous
  Country: US (occurrence: None)
  Receive Date: 20130522
  Receipt Date: 20130522
  Transmission Date: 20140414
  Serious: No
  Sender: FDA-Public Use
  Company Number: None

PATIENT
  Age: 74 Year
  Sex: Female
  Weight: 55.79 kg

DRUGS (1)
  1. INGENOL MEBUTATE [Suspect]
     Indication: HYPERKERATOSIS
     Dosage: SMALL AMOUNT 1 DAILY TOP
     Route: 061
     Dates: start: 20130516, end: 20130518

REACTIONS (5)
  - Application site swelling [None]
  - Application site vesicles [None]
  - Application site pustules [None]
  - Application site erythema [None]
  - Application site reaction [None]
